FAERS Safety Report 16674005 (Version 2)
Quarter: 2019Q3

REPORT INFORMATION
  Report Type: Spontaneous
  Country: DE (occurrence: DE)
  Receive Date: 20190806
  Receipt Date: 20190816
  Transmission Date: 20191004
  Serious: No
  Sender: FDA-Public Use
  Company Number: DE-BRISTOL-MYERS SQUIBB COMPANY-BMS-2019-075849

PATIENT

DRUGS (1)
  1. ELIQUIS [Suspect]
     Active Substance: APIXABAN
     Indication: CEREBROVASCULAR ACCIDENT PROPHYLAXIS
     Dosage: 5 MILLIGRAM, BID
     Route: 065
     Dates: start: 201710

REACTIONS (7)
  - Headache [Unknown]
  - Listless [Unknown]
  - Weight increased [Unknown]
  - Insomnia [Unknown]
  - Depression [Unknown]
  - Fluid retention [Unknown]
  - Myalgia [Unknown]
